FAERS Safety Report 7134385-2 (Version None)
Quarter: 2010Q4

REPORT INFORMATION
  Report Type: 
  Country: None (occurrence: None)
  Receive Date: 20101117
  Receipt Date: 20101102
  Transmission Date: 20110411
  Serious: Yes (Other)
  Sender: FDA-Public Use
  Company Number: WAES 1006USA04070

PATIENT
  Age: 68 Year
  Sex: Female

DRUGS (3)
  1. ZETIA [Suspect]
     Indication: HYPERCHOLESTEROLAEMIA
     Dosage: 5 MG/DAILY, PO
     Route: 048
     Dates: start: 20090612
  2. NIFEDIPINE [Concomitant]
  3. PRAVASTATIN SODIUM [Concomitant]

REACTIONS (1)
  - BILIARY CIRRHOSIS [None]
